FAERS Safety Report 20783081 (Version 6)
Quarter: 2022Q3

REPORT INFORMATION
  Report Type: Spontaneous
  Country: FR (occurrence: FR)
  Receive Date: 20220504
  Receipt Date: 20220701
  Transmission Date: 20221027
  Serious: Yes (Other)
  Sender: FDA-Public Use
  Company Number: FR-PFIZER INC-202200509464

PATIENT
  Age: 69 Year
  Sex: Female

DRUGS (1)
  1. PALBOCICLIB [Suspect]
     Active Substance: PALBOCICLIB
     Indication: Breast cancer female
     Dosage: UNK

REACTIONS (24)
  - Stomatitis [Recovering/Resolving]
  - Mucosal pain [Unknown]
  - Dry mouth [Unknown]
  - Oral disorder [Unknown]
  - Constipation [Recovered/Resolved]
  - Diarrhoea [Recovered/Resolved]
  - Oesophageal pain [Recovered/Resolved]
  - Nausea [Recovered/Resolved]
  - Dysgeusia [Not Recovered/Not Resolved]
  - Fatigue [Not Recovered/Not Resolved]
  - Palpitations [Unknown]
  - Gastrooesophageal reflux disease [Recovering/Resolving]
  - Dizziness postural [Recovered/Resolved]
  - Palmar-plantar erythrodysaesthesia syndrome [Recovered/Resolved]
  - Onychoclasis [Unknown]
  - Vision blurred [Unknown]
  - Cough [Unknown]
  - Ageusia [Unknown]
  - Dry skin [Recovered/Resolved]
  - Hypoacusis [Unknown]
  - Stomatitis [Not Recovered/Not Resolved]
  - Dizziness [Recovered/Resolved]
  - Vomiting [Recovered/Resolved]
  - Abdominal pain [Not Recovered/Not Resolved]

NARRATIVE: CASE EVENT DATE: 20220330
